FAERS Safety Report 10541806 (Version 1)
Quarter: 2014Q4

REPORT INFORMATION
  Report Type: Spontaneous
  Country: US (occurrence: US)
  Receive Date: 20141024
  Receipt Date: 20141024
  Transmission Date: 20150529
  Serious: No
  Sender: FDA-Public Use
  Company Number: US-NOVEN-14US009880

PATIENT
  Age: 51 Year
  Sex: Female

DRUGS (2)
  1. BRISDELLE [Suspect]
     Active Substance: PAROXETINE MESYLATE
     Indication: HOT FLUSH
     Dosage: 7.5 MG, UNK
     Route: 048
     Dates: start: 201407
  2. NEURONTIN [Concomitant]
     Active Substance: GABAPENTIN
     Indication: MOOD SWINGS
     Dosage: UNK
     Route: 048
     Dates: start: 201406, end: 201407

REACTIONS (1)
  - Anorgasmia [Unknown]
